FAERS Safety Report 12952836 (Version 1)
Quarter: 2016Q4

REPORT INFORMATION
  Report Type: Spontaneous
  Country: US (occurrence: US)
  Receive Date: 20161117
  Receipt Date: 20161117
  Transmission Date: 20170207
  Serious: No
  Sender: FDA-Public Use
  Company Number: US-NOVOPROD-474741

PATIENT
  Age: 58 Year

DRUGS (1)
  1. NOVOLOG [Suspect]
     Active Substance: INSULIN ASPART
     Indication: PRODUCT USED FOR UNKNOWN INDICATION
     Route: 058
     Dates: start: 20151212

REACTIONS (3)
  - Tongue discolouration [Not Recovered/Not Resolved]
  - Paraesthesia oral [Not Recovered/Not Resolved]
  - Swollen tongue [Not Recovered/Not Resolved]
